FAERS Safety Report 14805398 (Version 2)
Quarter: 2018Q2

REPORT INFORMATION
  Report Type: Spontaneous
  Country: ES (occurrence: ES)
  Receive Date: 20180425
  Receipt Date: 20180510
  Transmission Date: 20180711
  Serious: Yes (Other)
  Sender: FDA-Public Use
  Company Number: ES-TEVA-2018-ES-885632

PATIENT
  Age: 62 Year
  Sex: Male

DRUGS (4)
  1. QUETIAPINA 400 MG [Interacting]
     Active Substance: QUETIAPINE
     Indication: SCHIZOPHRENIA
  2. FLUTICASONA/SALMETEROL 250/25 MCG [Interacting]
     Active Substance: FLUTICASONE FUROATE\SALMETEROL XINAFOATE
     Indication: ASTHMA
     Dosage: 1 DOSAGE FORMS DAILY; INTERVAL 1-0-1-0-2 INHALACIONES
     Route: 048
  3. HALOPERIDOL. [Interacting]
     Active Substance: HALOPERIDOL
     Indication: PSYCHOTIC DISORDER
     Dosage: 15 MILLIGRAM DAILY;
     Route: 065
  4. QUETIAPINA 400 MG [Suspect]
     Active Substance: QUETIAPINE
     Indication: DEPRESSION
     Dosage: 1200 MILLIGRAM DAILY;
     Route: 065

REACTIONS (5)
  - Drug interaction [Unknown]
  - Prescribed overdose [Unknown]
  - Pruritus [Unknown]
  - Type 2 diabetes mellitus [Unknown]
  - Hypothyroidism [Unknown]
